FAERS Safety Report 11924086 (Version 1)
Quarter: 2016Q1

REPORT INFORMATION
  Report Type: Spontaneous
  Country: GB (occurrence: GB)
  Receive Date: 20160118
  Receipt Date: 20160118
  Transmission Date: 20160526
  Serious: Yes (Life-Threatening, Hospitalization)
  Sender: FDA-Public Use
  Company Number: GB-JNJFOC-20160109261

PATIENT
  Age: 36 Year
  Sex: Female

DRUGS (6)
  1. AMOXICILLIN. [Concomitant]
     Active Substance: AMOXICILLIN
     Dosage: 500 (UNIT UNSPECIFIED)
     Route: 065
     Dates: start: 20151006
  2. CILEST [Suspect]
     Active Substance: ETHINYL ESTRADIOL\NORGESTIMATE
     Indication: PRODUCT USED FOR UNKNOWN INDICATION
     Dosage: FOR 21 DAYS, SUBSEQUENT COURSES REPEATED AFTER 7 DAY TABLET FREE INTERVAL.
     Route: 048
     Dates: end: 20151203
  3. LEVONORGESTREL. [Concomitant]
     Active Substance: LEVONORGESTREL
     Dosage: AS A SINGLE DOSE AS SOON AS POSSIBLE PREFERABLY WITHIN 12 HOURS BUT NOT LATER THAN 72 HOURS.
     Route: 065
     Dates: start: 20150925, end: 20150925
  4. VENTOLINE [Concomitant]
     Active Substance: ALBUTEROL
     Dosage: 100 MICROGRAM/DOSE, 1-2 PUFFS UPTO FOUR TIMES A DAY.
     Route: 065
  5. MIRTAZAPINE. [Concomitant]
     Active Substance: MIRTAZAPINE
     Dosage: AT NIGHT.
     Route: 065
  6. PARACETAMOL [Concomitant]
     Active Substance: ACETAMINOPHEN
     Dosage: 1-2 4 TIMES A DAY.
     Route: 065

REACTIONS (6)
  - Hemianopia homonymous [Unknown]
  - Asthenia [Unknown]
  - Pain in extremity [Unknown]
  - Visual impairment [Unknown]
  - Headache [Unknown]
  - Cerebellar infarction [Recovered/Resolved with Sequelae]

NARRATIVE: CASE EVENT DATE: 20151203
